FAERS Safety Report 6706059-0 (Version None)
Quarter: 2010Q2

REPORT INFORMATION
  Report Type: 
  Country: None (occurrence: None)
  Receive Date: 20100503
  Receipt Date: 20100422
  Transmission Date: 20101027
  Serious: Yes (Hospitalization)
  Sender: FDA-Public Use
  Company Number: US-SANOFI-AVENTIS-2010SA024559

PATIENT
  Age: 66 Year
  Sex: Male
  Weight: 99.77 kg

DRUGS (5)
  1. PLAVIX [Suspect]
     Route: 048
     Dates: start: 20100201
  2. PLAVIX [Suspect]
     Indication: CORONARY ARTERIAL STENT INSERTION
     Route: 048
     Dates: start: 20100201
  3. METOPROLOL [Concomitant]
  4. ASPIRIN [Concomitant]
     Route: 048
  5. ALL OTHER THERAPEUTIC PRODUCTS [Concomitant]

REACTIONS (1)
  - BLOOD PRESSURE SYSTOLIC INCREASED [None]
